FAERS Safety Report 5110272-6 (Version None)
Quarter: 2006Q3

REPORT INFORMATION
  Report Type: 
  Country: None (occurrence: None)
  Receive Date: 20060921
  Receipt Date: 20060912
  Transmission Date: 20061208
  Serious: Yes (Hospitalization)
  Sender: FDA-Public Use
  Company Number: FR-GLAXOSMITHKLINE-B0438375A

PATIENT
  Age: 62 Year
  Sex: Female
  Weight: 93 kg

DRUGS (3)
  1. ZOPHREN [Suspect]
     Route: 042
     Dates: start: 20060406
  2. CHRONADALATE [Suspect]
     Indication: ESSENTIAL HYPERTENSION
     Route: 048
  3. CAELYX [Suspect]
     Indication: OVARIAN CANCER
     Dosage: 65MG MONTHLY
     Route: 042
     Dates: start: 20060217

REACTIONS (1)
  - DERMATITIS BULLOUS [None]
